FAERS Safety Report 25665734 (Version 3)
Quarter: 2025Q3

REPORT INFORMATION
  Report Type: Spontaneous
  Country: JP (occurrence: JP)
  Receive Date: 20250811
  Receipt Date: 20250829
  Transmission Date: 20251021
  Serious: Yes (Hospitalization)
  Sender: ABBVIE
  Company Number: JP-ABBVIE-6407257

PATIENT
  Age: 44 Year
  Sex: Male

DRUGS (1)
  1. RINVOQ [Suspect]
     Active Substance: UPADACITINIB
     Indication: Colitis ulcerative
     Route: 048
     Dates: start: 20250802

REACTIONS (4)
  - C-reactive protein increased [Unknown]
  - Pyrexia [Unknown]
  - Myalgia [Unknown]
  - Back pain [Unknown]

NARRATIVE: CASE EVENT DATE: 20250801
